FAERS Safety Report 5643039-0 (Version None)
Quarter: 2008Q1

REPORT INFORMATION
  Report Type: 
  Country: None (occurrence: None)
  Receive Date: 20080228
  Receipt Date: 20080220
  Transmission Date: 20080703
  Serious: Yes (Other)
  Sender: FDA-Public Use
  Company Number: PHBS2008BR02502

PATIENT
  Age: 47 Year
  Sex: Female
  Weight: 60 kg

DRUGS (2)
  1. DIOVAN HCT [Suspect]
     Indication: HYPERTENSION
     Dosage: VALS 80 /HCT 12.5 MG/DAY
     Route: 048
     Dates: start: 20060101
  2. CLOPIDOGREL BISULFATE [Concomitant]
     Dosage: 75 MG, UNK

REACTIONS (2)
  - CATHETERISATION CARDIAC [None]
  - INFARCTION [None]
